FAERS Safety Report 26191871 (Version 1)
Quarter: 2025Q4

REPORT INFORMATION
  Report Type: Spontaneous
  Country: CN (occurrence: CN)
  Receive Date: 20251223
  Receipt Date: 20251223
  Transmission Date: 20260117
  Serious: Yes (Other)
  Sender: ORGANON
  Company Number: CN-ORGANON-O2512CHN001327

PATIENT
  Age: 4 Year
  Sex: Male
  Weight: 15 kg

DRUGS (1)
  1. SINGULAIR [Suspect]
     Active Substance: MONTELUKAST SODIUM
     Indication: Cough
     Dosage: 4MG, QN, ORALLY
     Route: 061
     Dates: start: 20251106, end: 20251106

REACTIONS (5)
  - Oxygen saturation decreased [Recovering/Resolving]
  - Tachypnoea [Recovered/Resolved]
  - Dizziness [Recovered/Resolved]
  - Product use in unapproved indication [Unknown]
  - Product use issue [Unknown]

NARRATIVE: CASE EVENT DATE: 20251106
